FAERS Safety Report 8172058-8 (Version None)
Quarter: 2012Q1

REPORT INFORMATION
  Report Type: 
  Country: None (occurrence: None)
  Receive Date: 20120228
  Receipt Date: 20120222
  Transmission Date: 20120608
  Serious: Yes (Life-Threatening, Hospitalization)
  Sender: FDA-Public Use
  Company Number: SE-SANOFI-AVENTIS-2012SA012594

PATIENT
  Age: 70 Year
  Sex: Female

DRUGS (3)
  1. DOCETAXEL [Suspect]
     Route: 042
     Dates: start: 20090318
  2. BETAMETHASONE [Concomitant]
     Route: 048
     Dates: start: 20090317, end: 20090319
  3. TRASTUZUMAB [Suspect]
     Route: 042
     Dates: start: 20090318

REACTIONS (5)
  - ABDOMINAL PAIN [None]
  - GASTRIC ULCER [None]
  - PYREXIA [None]
  - COLITIS [None]
  - DIARRHOEA [None]
